FAERS Safety Report 16307596 (Version 2)
Quarter: 2019Q2

REPORT INFORMATION
  Report Type: Spontaneous
  Country: IT (occurrence: IT)
  Receive Date: 20190514
  Receipt Date: 20190517
  Transmission Date: 20190711
  Serious: Yes (Hospitalization, Other)
  Sender: FDA-Public Use
  Company Number: IT-APOTEX-2019AP013819

PATIENT
  Age: 27 Year
  Sex: Female

DRUGS (2)
  1. QUETIAPINE. [Suspect]
     Active Substance: QUETIAPINE
     Indication: SUICIDE ATTEMPT
  2. QUETIAPINE. [Suspect]
     Active Substance: QUETIAPINE
     Indication: PRODUCT USED FOR UNKNOWN INDICATION
     Dosage: 50 DF, UNK
     Route: 065

REACTIONS (8)
  - Lactic acidosis [Recovering/Resolving]
  - Suicide attempt [Unknown]
  - Mental disorder [Recovering/Resolving]
  - Agitation [Recovered/Resolved]
  - Sinus tachycardia [Recovered/Resolved]
  - Seizure [Recovering/Resolving]
  - Intentional overdose [Recovered/Resolved]
  - Drug level increased [Recovered/Resolved]
